FAERS Safety Report 7218318-6 (Version None)
Quarter: 2011Q1

REPORT INFORMATION
  Report Type: 
  Country: None (occurrence: None)
  Receive Date: 20110110
  Receipt Date: 20110107
  Transmission Date: 20110831
  Serious: Yes (Other)
  Sender: FDA-Public Use
  Company Number: US-AMGEN-USASP2011001055

PATIENT

DRUGS (5)
  1. ESTRADIOL [Concomitant]
  2. NPLATE [Suspect]
     Indication: IDIOPATHIC THROMBOCYTOPENIC PURPURA
     Dates: start: 20101017
  3. SEROQUEL [Concomitant]
  4. ZOLOFT [Concomitant]
  5. LAMICTAL [Concomitant]

REACTIONS (2)
  - FATIGUE [None]
  - PLATELET COUNT DECREASED [None]
